FAERS Safety Report 4541761-0 (Version None)
Quarter: 2004Q4

REPORT INFORMATION
  Report Type: 
  Country: None (occurrence: None)
  Receive Date: 20041227
  Receipt Date: 20041213
  Transmission Date: 20050328
  Serious: Yes (Hospitalization)
  Sender: FDA-Public Use
  Company Number: 2004213283DE

PATIENT
  Age: 66 Year
  Sex: Female
  Weight: 84 kg

DRUGS (3)
  1. EPIRUBICIN HYDROCHLORIDE (EPIRUBICIN HYDROCHLORIDE) [Suspect]
     Indication: BREAST CANCER
     Dosage: 114 MG, CYCLIC, INTRAVENOUS
     Route: 042
     Dates: start: 20030702, end: 20030709
  2. FLUOROURACIL [Suspect]
     Indication: BREAST CANCER
     Dosage: 955 MG, CYCLIC, INTRAVENOUS
     Route: 042
     Dates: start: 20030702, end: 20030709
  3. CYCLOPHOSPHAMIDE [Suspect]
     Indication: BREAST CANCER
     Dosage: 125 MG, CYCLIC, ORAL
     Route: 048
     Dates: start: 20030702, end: 20030716

REACTIONS (8)
  - ANAL FISSURE [None]
  - ANAL HAEMORRHAGE [None]
  - BONE MARROW DEPRESSION [None]
  - CHRONIC FATIGUE SYNDROME [None]
  - DEPRESSION [None]
  - HAEMORRHOIDS [None]
  - PROCTALGIA [None]
  - RECTAL ULCER [None]
